FAERS Safety Report 15637875 (Version 3)
Quarter: 2018Q4

REPORT INFORMATION
  Report Type: Report from Study
  Country: GB (occurrence: GB)
  Receive Date: 20181120
  Receipt Date: 20181129
  Transmission Date: 20190205
  Serious: Yes (Death, Hospitalization)
  Sender: FDA-Public Use
  Company Number: GB-ROCHE-2215356

PATIENT
  Age: 68 Year
  Sex: Female
  Weight: 65 kg

DRUGS (3)
  1. GEMCITABINE [Suspect]
     Active Substance: GEMCITABINE\GEMCITABINE HYDROCHLORIDE
     Indication: DIFFUSE LARGE B-CELL LYMPHOMA
     Dosage: ON 24/OCT/2018 RECEIVED MOST RECENT DOSE OF GEMCTABINE PRIOR TO AE
     Route: 041
     Dates: start: 20181002
  2. RITUXIMAB. [Suspect]
     Active Substance: RITUXIMAB
     Indication: DIFFUSE LARGE B-CELL LYMPHOMA
     Dosage: ON 24/OCT/2018 RECEIVED MOST RECENT DOSE OF RITUXIMAB PRIOR TO AE
     Route: 058
     Dates: start: 20181002
  3. ATEZOLIZUMAB. [Suspect]
     Active Substance: ATEZOLIZUMAB
     Indication: DIFFUSE LARGE B-CELL LYMPHOMA
     Dosage: ON 24/OCT/2018 RECEIVED MOST RECENT DOSE OF ATEZOLIZUMAB PRIOR TO AE
     Route: 041
     Dates: start: 20181024

REACTIONS (1)
  - Sepsis [Not Recovered/Not Resolved]

NARRATIVE: CASE EVENT DATE: 20181112
